FAERS Safety Report 7705497-7 (Version None)
Quarter: 2011Q3

REPORT INFORMATION
  Report Type: 
  Country: None (occurrence: None)
  Receive Date: 20110818
  Receipt Date: 20110803
  Transmission Date: 20111222
  Serious: Yes (Other)
  Sender: FDA-Public Use
  Company Number: 2011MA011528

PATIENT
  Sex: Female

DRUGS (5)
  1. CITALOPRAM HYDROBROMIDE [Suspect]
     Dosage: 20 MG
     Dates: end: 20110716
  2. FUROSEMIDE [Concomitant]
  3. SIMAVASTATIN [Concomitant]
  4. CANDESARTAN CILEXETIL [Concomitant]
  5. MIRTAZAPINE [Suspect]
     Dates: start: 20110722, end: 20110722

REACTIONS (7)
  - BLOOD PRESSURE FLUCTUATION [None]
  - FALL [None]
  - PALPITATIONS [None]
  - CIRCULATORY COLLAPSE [None]
  - SCREAMING [None]
  - HAND FRACTURE [None]
  - NIGHTMARE [None]
